FAERS Safety Report 5378257-2 (Version None)
Quarter: 2007Q3

REPORT INFORMATION
  Report Type: 
  Country: None (occurrence: None)
  Receive Date: 20070702
  Receipt Date: 20070620
  Transmission Date: 20080115
  Serious: Yes (Death, Hospitalization)
  Sender: FDA-Public Use
  Company Number: MEDI-0005842

PATIENT
  Age: 73 Year
  Sex: Female

DRUGS (9)
  1. ETHYOL [Suspect]
     Indication: RADIOTHERAPY
     Dosage: 500 MG, 1 IN 1 D, SUBCUTANEOUS
     Route: 058
     Dates: start: 20070614, end: 20070615
  2. XELODA (CAPECITABINE) (CAPECITABINE) [Concomitant]
  3. RADIATION THERAPY [Concomitant]
  4. FLUOROURACIL [Concomitant]
  5. COMPAZINE (PROCHLORERAZINE) (PROCHLORPERAZINE EDISYLATE) [Concomitant]
  6. L-THYROXINE (LEVOTHYROXINE) (LEVOTHYROXINE) [Concomitant]
  7. PRINZIDE [Concomitant]
  8. TEMAZEPAM [Concomitant]
  9. ANZEMET (DOLASETRON MESILATE) (DOLASETRON MESILATE) [Concomitant]

REACTIONS (4)
  - ANOREXIA [None]
  - CARDIO-RESPIRATORY ARREST [None]
  - DIARRHOEA [None]
  - PULMONARY EMBOLISM [None]
